FAERS Safety Report 24778850 (Version 1)
Quarter: 2024Q4

REPORT INFORMATION
  Report Type: Report from Study
  Country: US (occurrence: US)
  Receive Date: 20241226
  Receipt Date: 20241226
  Transmission Date: 20250114
  Serious: Yes (Other)
  Sender: ALEXION PHARMACEUTICALS
  Company Number: US-AstraZeneca-CH-00774133A

PATIENT
  Weight: 59.864 kg

DRUGS (4)
  1. OSIMERTINIB [Suspect]
     Active Substance: OSIMERTINIB
     Indication: Non-small cell lung cancer
     Dosage: 40 MILLIGRAM, QD
  2. OSIMERTINIB [Suspect]
     Active Substance: OSIMERTINIB
     Indication: Cardiac disorder
     Dosage: 40 MILLIGRAM, QD
     Route: 048
  3. OSIMERTINIB [Suspect]
     Active Substance: OSIMERTINIB
     Dosage: 40 MILLIGRAM, QD
  4. OSIMERTINIB [Suspect]
     Active Substance: OSIMERTINIB
     Dosage: 40 MILLIGRAM, QD
     Route: 048

REACTIONS (10)
  - Upper respiratory tract infection [Unknown]
  - Toxicity to various agents [Unknown]
  - Rash [Unknown]
  - Pruritus [Unknown]
  - Dry skin [Unknown]
  - Hypertension [Unknown]
  - Blood cholesterol increased [Unknown]
  - HIV infection [Unknown]
  - Eye disorder [Unknown]
  - Herpes virus infection [Unknown]
